FAERS Safety Report 10025016 (Version 1)
Quarter: 2014Q1

REPORT INFORMATION
  Report Type: Spontaneous
  Country: US (occurrence: US)
  Receive Date: 20140320
  Receipt Date: 20140320
  Transmission Date: 20141002
  Serious: Yes (Hospitalization, Other)
  Sender: FDA-Public Use
  Company Number: US-ABBVIE-14P-163-1213144-00

PATIENT
  Sex: Female

DRUGS (2)
  1. CREON [Suspect]
     Indication: PANCREATITIS CHRONIC
  2. BOOST [Concomitant]
     Indication: PRODUCT USED FOR UNKNOWN INDICATION
     Dosage: IN MORNING

REACTIONS (3)
  - Pancreatolithiasis [Unknown]
  - Pancreatitis [Unknown]
  - Nausea [Unknown]
